FAERS Safety Report 4736274-7 (Version None)
Quarter: 2005Q3

REPORT INFORMATION
  Report Type: 
  Country: None (occurrence: None)
  Receive Date: 20050802
  Receipt Date: 20050323
  Transmission Date: 20060218
  Serious: Yes (Death, Other)
  Sender: FDA-Public Use
  Company Number: 2003189350GB

PATIENT
  Age: 70 Year
  Sex: Female
  Weight: 68.8 kg

DRUGS (14)
  1. FRAGMIN [Suspect]
     Indication: PULMONARY EMBOLISM
     Dosage: 12500 I.U. (12500 I.U., 1 IN 1 D), SUBCUTANEOUS
     Route: 058
     Dates: start: 20031122, end: 20031127
  2. FRAGMIN [Suspect]
     Indication: THROMBOSIS
     Dosage: 12500 I.U. (12500 I.U., 1 IN 1 D), SUBCUTANEOUS
     Route: 058
     Dates: start: 20031122, end: 20031127
  3. CLOPIDOGREL BISULFATE [Suspect]
     Indication: ACUTE CORONARY SYNDROME
     Dosage: 75 MG (75 MG, 1 IN 1 D), ORAL
     Route: 048
     Dates: start: 20030616, end: 20031128
  4. ASPIRIN [Concomitant]
  5. PREDNISONE [Concomitant]
  6. DILTIAZEM HCL [Concomitant]
  7. NICORANDIL (NICORANDIL) [Concomitant]
  8. PRAVASTATIN [Concomitant]
  9. THYROXIN (LEVOTHYROXINE SODIUM) [Concomitant]
  10. DIDRONEL [Concomitant]
  11. LANSOPRAZOLE [Concomitant]
  12. SERETIDE MITE (FLUTICASONE PROPIONATE, SALMETEROL XINAFOATE) [Concomitant]
  13. CALAMINE/CAMPHOR/DIPHENHYDRAMINE  (CALAMINE, CAMPHOR, DIPHENHYDRAMINE) [Concomitant]
  14. ALBUTEROL SULFATE HFA [Concomitant]

REACTIONS (4)
  - ABDOMINAL WALL DISORDER [None]
  - HAEMOGLOBIN DECREASED [None]
  - HAEMORRHAGE [None]
  - INCORRECT DOSE ADMINISTERED [None]
